FAERS Safety Report 7680219-7 (Version None)
Quarter: 2011Q3

REPORT INFORMATION
  Report Type: 
  Country: None (occurrence: None)
  Receive Date: 20110812
  Receipt Date: 20110803
  Transmission Date: 20111222
  Serious: Yes (Other)
  Sender: FDA-Public Use
  Company Number: US-ROCHE-794932

PATIENT
  Sex: Male

DRUGS (1)
  1. ACCUTANE [Suspect]
     Route: 065
     Dates: start: 19951201, end: 19960401

REACTIONS (4)
  - DUODENITIS [None]
  - SYNCOPE [None]
  - COELIAC DISEASE [None]
  - GASTRITIS [None]
